FAERS Safety Report 7073723-6 (Version None)
Quarter: 2010Q4

REPORT INFORMATION
  Report Type: 
  Country: None (occurrence: None)
  Receive Date: 20101029
  Receipt Date: 20100805
  Transmission Date: 20110411
  Serious: No
  Sender: FDA-Public Use
  Company Number: A0874213A

PATIENT
  Age: 51 Year
  Sex: Female

DRUGS (4)
  1. ADVAIR DISKUS 100/50 [Suspect]
     Indication: ASTHMA
     Route: 055
  2. EFFEXOR [Concomitant]
  3. WATER PILL [Concomitant]
  4. PROPRANOLOL [Concomitant]

REACTIONS (1)
  - DRUG INEFFECTIVE [None]
